FAERS Safety Report 9386646 (Version 1)
Quarter: 2013Q3

REPORT INFORMATION
  Report Type: Report from Study
  Country: CA (occurrence: CA)
  Receive Date: 20130708
  Receipt Date: 20130708
  Transmission Date: 20140515
  Serious: Yes (Death)
  Sender: FDA-Public Use
  Company Number: PHHY2011CA098793

PATIENT
  Age: 91 Year
  Sex: Female

DRUGS (1)
  1. SANDOSTATIN LAR [Suspect]
     Indication: NEUROENDOCRINE TUMOUR
     Dosage: 30MG EVERY 24 DAYS
     Route: 030
     Dates: start: 20090206, end: 20130610

REACTIONS (2)
  - Death [Fatal]
  - Vomiting [Unknown]
